FAERS Safety Report 8271896-0 (Version None)
Quarter: 2012Q2

REPORT INFORMATION
  Report Type: 
  Country: None (occurrence: None)
  Receive Date: 20120410
  Receipt Date: 20120404
  Transmission Date: 20120825
  Serious: Yes (Hospitalization)
  Sender: FDA-Public Use
  Company Number: IE-US-EMD SERONO, INC.-7048918

PATIENT
  Sex: Male

DRUGS (3)
  1. SWINE FLU VACCINE [Concomitant]
     Indication: PRODUCT USED FOR UNKNOWN INDICATION
     Dates: start: 20110101
  2. REBIF [Suspect]
     Indication: RELAPSING-REMITTING MULTIPLE SCLEROSIS
     Route: 058
     Dates: start: 20090309
  3. FLU VACCINE [Concomitant]
     Indication: PRODUCT USED FOR UNKNOWN INDICATION
     Dates: start: 20110101

REACTIONS (9)
  - EAR INFECTION [None]
  - CHEST PAIN [None]
  - INJECTION SITE ERYTHEMA [None]
  - PARAESTHESIA [None]
  - PAIN IN EXTREMITY [None]
  - BACK PAIN [None]
  - NECK PAIN [None]
  - HYPERTENSION [None]
  - INJECTION SITE HAEMATOMA [None]
